FAERS Safety Report 19038081 (Version 1)
Quarter: 2021Q1

REPORT INFORMATION
  Report Type: Spontaneous
  Country: US (occurrence: US)
  Receive Date: 20210322
  Receipt Date: 20210322
  Transmission Date: 20210420
  Serious: Yes (Other)
  Sender: FDA-Public Use
  Company Number: US-ACCORD-220276

PATIENT
  Age: 59 Year
  Sex: Male

DRUGS (5)
  1. CLOPIDOGREL [Suspect]
     Active Substance: CLOPIDOGREL BISULFATE
     Indication: CORONARY ARTERY DISEASE
     Dosage: ONCE DAY
     Route: 048
     Dates: start: 201901, end: 20210212
  2. CARVEDILOL/CARVEDILOL HYDROCHLODRIDE [Concomitant]
     Active Substance: CARVEDILOL HYDROCHLORIDE
     Dosage: 10MG
  3. ACETYLSALICYLIC ACID [Concomitant]
     Active Substance: ASPIRIN
     Dosage: COATED, 81 MG
  4. CLOPIDOGREL DR REDDY [Concomitant]
     Dosage: 75MG.
     Dates: start: 202103, end: 202103
  5. ROSUVASTATIN/ROSUVASTATIN CALCIUM [Concomitant]
     Active Substance: ROSUVASTATIN CALCIUM

REACTIONS (6)
  - Cholangitis [Unknown]
  - Faeces discoloured [Unknown]
  - Enzyme abnormality [Unknown]
  - Steatorrhoea [Unknown]
  - Flatulence [Unknown]
  - Product dose omission issue [Unknown]

NARRATIVE: CASE EVENT DATE: 20210212
